FAERS Safety Report 18532290 (Version 1)
Quarter: 2020Q4

REPORT INFORMATION
  Report Type: Spontaneous
  Country: US (occurrence: US)
  Receive Date: 20201123
  Receipt Date: 20201123
  Transmission Date: 20210114
  Serious: Yes (Hospitalization, Other)
  Sender: FDA-Public Use
  Company Number: US-AUROBINDO-AUR-APL-2014-01354

PATIENT
  Age: 37 Year
  Sex: Female

DRUGS (14)
  1. CLONAZEPAM. [Suspect]
     Active Substance: CLONAZEPAM
     Indication: DEPRESSION
  2. PAROXETINE TABLETS USP 10MG [Suspect]
     Active Substance: PAROXETINE
     Indication: DEPRESSION
  3. PAROXETINE TABLETS USP 10MG [Suspect]
     Active Substance: PAROXETINE
     Indication: OBSESSIVE-COMPULSIVE DISORDER
     Dosage: UNK UNK,UNK,
     Route: 048
  4. LAMOTRIGINE TABLET [Suspect]
     Active Substance: LAMOTRIGINE
     Dosage: UNK
     Route: 065
  5. FLUOXETINE [Suspect]
     Active Substance: FLUOXETINE HYDROCHLORIDE
     Indication: DEPRESSION
  6. GLYBURIDE. [Suspect]
     Active Substance: GLYBURIDE
     Indication: GESTATIONAL DIABETES
     Dosage: UNK
     Route: 065
  7. QUETIAPINE FUMARATE TABLETS 25MG [Suspect]
     Active Substance: QUETIAPINE FUMARATE
     Indication: DEPRESSION
  8. LORAZEPAM. [Suspect]
     Active Substance: LORAZEPAM
     Indication: PRODUCT USED FOR UNKNOWN INDICATION
     Dosage: UNK
     Route: 065
  9. QUETIAPINE FUMARATE TABLETS 25MG [Suspect]
     Active Substance: QUETIAPINE FUMARATE
     Indication: SUICIDAL BEHAVIOUR
  10. CLONAZEPAM. [Suspect]
     Active Substance: CLONAZEPAM
     Indication: OBSESSIVE-COMPULSIVE DISORDER
     Dosage: UNK UNK,UNK,
     Route: 048
  11. BETAMETHASONE. [Suspect]
     Active Substance: BETAMETHASONE
     Indication: PRODUCT USED FOR UNKNOWN INDICATION
     Dosage: UNK
     Route: 065
  12. HALOPERIDOL. [Suspect]
     Active Substance: HALOPERIDOL
     Indication: PRODUCT USED FOR UNKNOWN INDICATION
     Dosage: UNK
     Route: 065
  13. QUETIAPINE FUMARATE TABLETS 25MG [Suspect]
     Active Substance: QUETIAPINE FUMARATE
     Indication: OBSESSIVE-COMPULSIVE DISORDER
     Dosage: UNK UNK,UNK,
     Route: 048
  14. FLUOXETINE [Suspect]
     Active Substance: FLUOXETINE HYDROCHLORIDE
     Indication: OBSESSIVE-COMPULSIVE DISORDER
     Dosage: UNK UNK,UNK,
     Route: 048

REACTIONS (10)
  - Intentional overdose [Recovered/Resolved]
  - Exposure during pregnancy [Recovered/Resolved]
  - Suicidal behaviour [Recovered/Resolved]
  - Gestational diabetes [Recovered/Resolved]
  - Pre-eclampsia [Recovered/Resolved]
  - Suicide attempt [Recovered/Resolved]
  - Hypertension [Recovered/Resolved]
  - Transaminases increased [Recovered/Resolved]
  - Loss of consciousness [Recovered/Resolved]
  - Hyperglycaemia [Recovered/Resolved]
